FAERS Safety Report 6521334-0 (Version None)
Quarter: 2009Q4

REPORT INFORMATION
  Report Type: 
  Country: None (occurrence: None)
  Receive Date: 20091230
  Receipt Date: 20091222
  Transmission Date: 20100525
  Serious: Yes (Other)
  Sender: FDA-Public Use
  Company Number: US-JNJFOC-20091107043

PATIENT
  Sex: Female
  Weight: 86.18 kg

DRUGS (3)
  1. NUCYNTA [Suspect]
     Indication: PAIN
     Route: 048
  2. ALBUTEROL [Concomitant]
     Indication: ASTHMA
     Route: 055
  3. SYMBICORT [Concomitant]
     Indication: ASTHMA
     Route: 055

REACTIONS (3)
  - DEPRESSED LEVEL OF CONSCIOUSNESS [None]
  - DYSPNOEA [None]
  - PNEUMONIA [None]
